FAERS Safety Report 11012757 (Version 2)
Quarter: 2015Q2

REPORT INFORMATION
  Report Type: Spontaneous
  Country: US (occurrence: US)
  Receive Date: 20150411
  Receipt Date: 20150525
  Transmission Date: 20150821
  Serious: No
  Sender: FDA-Public Use
  Company Number: US-JNJFOC-20130904725

PATIENT
  Sex: Female
  Weight: 90.72 kg

DRUGS (7)
  1. REMICADE [Suspect]
     Active Substance: INFLIXIMAB
     Indication: ANKYLOSING SPONDYLITIS
     Route: 042
     Dates: start: 2006, end: 2007
  2. OXYBUTYNIN [Concomitant]
     Active Substance: OXYBUTYNIN
     Indication: POLLAKIURIA
     Route: 048
     Dates: start: 20130816
  3. OXYCODONE [Concomitant]
     Active Substance: OXYCODONE
     Indication: FIBROMYALGIA
     Route: 048
     Dates: start: 2009
  4. LOSARTAN AND HYDROCHLOROTHIAZIDE [Concomitant]
     Active Substance: HYDROCHLOROTHIAZIDE\LOSARTAN POTASSIUM
     Indication: HYPERTENSION
     Route: 048
     Dates: start: 2008
  5. LYRICA [Concomitant]
     Active Substance: PREGABALIN
     Indication: SLEEP DISORDER
     Route: 048
     Dates: start: 20130816
  6. LEVOTHYROXINE [Concomitant]
     Active Substance: LEVOTHYROXINE
     Indication: THYROID DISORDER
     Route: 048
     Dates: start: 201203
  7. LORAZEPAM. [Concomitant]
     Active Substance: LORAZEPAM
     Indication: STRESS
     Route: 048
     Dates: start: 2009

REACTIONS (1)
  - Drug ineffective [Recovered/Resolved]
